FAERS Safety Report 15133549 (Version 3)
Quarter: 2018Q3

REPORT INFORMATION
  Report Type: Spontaneous
  Country: US (occurrence: US)
  Receive Date: 20180712
  Receipt Date: 20180906
  Transmission Date: 20181010
  Serious: Yes (Hospitalization)
  Sender: FDA-Public Use
  Company Number: US-REGULIS-2051848

PATIENT
  Age: 35 Year
  Sex: Female

DRUGS (3)
  1. FENTANYL. [Suspect]
     Active Substance: FENTANYL
  2. CYMBALTA [Suspect]
     Active Substance: DULOXETINE HYDROCHLORIDE
  3. METHYLENE BLUE. [Suspect]
     Active Substance: METHYLENE BLUE
     Route: 025

REACTIONS (3)
  - Drug interaction [Recovered/Resolved]
  - Off label use [Recovered/Resolved]
  - Serotonin syndrome [Recovered/Resolved]
